FAERS Safety Report 18202286 (Version 1)
Quarter: 2020Q3

REPORT INFORMATION
  Report Type: Spontaneous
  Country: US (occurrence: US)
  Receive Date: 20200827
  Receipt Date: 20200827
  Transmission Date: 20201103
  Serious: Yes (Other)
  Sender: FDA-Public Use
  Company Number: None

PATIENT
  Age: 43 Year
  Sex: Female
  Weight: 86.1 kg

DRUGS (13)
  1. DEXTROAMPHETAMINE?AMPHETAMINE 10 MG [Concomitant]
     Dates: start: 20130101
  2. IBUPROFEN 800 MG [Concomitant]
     Active Substance: IBUPROFEN
     Dates: start: 20200817
  3. ALPRAZOLAM 2 MG [Concomitant]
     Dates: start: 20130101
  4. BUTALBITAL?ACETAMINOPHEN?CAFFEINE 50?325?40 MG [Concomitant]
     Dates: start: 20120101
  5. ONDANSETRON ODT 4 MG [Concomitant]
     Dates: start: 20190621
  6. TRUVADA [Suspect]
     Active Substance: EMTRICITABINE\TENOFOVIR DISOPROXIL FUMARATE
     Indication: PROPHYLAXIS AGAINST HIV INFECTION
     Route: 048
     Dates: start: 20200817, end: 20200818
  7. IPRATROPIUM 0.02% [Concomitant]
     Dates: start: 20190823
  8. ADVAIR DISKUS [Concomitant]
     Active Substance: FLUTICASONE PROPIONATE\SALMETEROL XINAFOATE
     Dates: start: 20120101
  9. MUPIROCIN 2% [Concomitant]
     Active Substance: MUPIROCIN
     Dates: start: 20200409
  10. CARISOPRODOL 350 MG [Concomitant]
     Active Substance: CARISOPRODOL
     Dates: start: 20120101
  11. ESOMEPRAZOLE 40 MG [Concomitant]
     Active Substance: ESOMEPRAZOLE
     Dates: start: 20170101
  12. OXYCODONE?ACETAMINOPHEN 7.5?325 MG [Concomitant]
     Dates: start: 20140101
  13. PROMETHAZINE [Concomitant]
     Active Substance: PROMETHAZINE HYDROCHLORIDE
     Dates: start: 20200403

REACTIONS (3)
  - Genital burning sensation [None]
  - Crying [None]
  - Skin burning sensation [None]

NARRATIVE: CASE EVENT DATE: 20200826
